FAERS Safety Report 9193769 (Version 2)
Quarter: 2013Q2

REPORT INFORMATION
  Report Type: Report from Study
  Country: AR (occurrence: AR)
  Receive Date: 20130327
  Receipt Date: 20130513
  Transmission Date: 20140414
  Serious: Yes (Hospitalization, Other)
  Sender: FDA-Public Use
  Company Number: PHHY2013AR029829

PATIENT
  Sex: Female

DRUGS (3)
  1. EXFORGE [Suspect]
     Indication: HYPERTENSION
     Dosage: 1 DF, (VALS 150 MG/AMLO 5 MG)
     Dates: start: 2011, end: 20121210
  2. DIOVAN [Suspect]
     Dosage: 160 MG, UNK
  3. RASILEZ [Suspect]
     Dosage: UNK UKN, UNK

REACTIONS (4)
  - Localised infection [Recovering/Resolving]
  - Wound [Recovering/Resolving]
  - Arterial occlusive disease [Recovering/Resolving]
  - Blood pressure decreased [Unknown]
